FAERS Safety Report 7027642-1 (Version None)
Quarter: 2010Q4

REPORT INFORMATION
  Report Type: 
  Country: None (occurrence: None)
  Receive Date: 20101004
  Receipt Date: 20100927
  Transmission Date: 20110411
  Serious: Yes (Death, Hospitalization)
  Sender: FDA-Public Use
  Company Number: ZA-WYE-H17776510

PATIENT
  Sex: Male
  Weight: 76 kg

DRUGS (8)
  1. TEMSIROLIMUS [Suspect]
     Indication: RENAL CELL CARCINOMA
     Route: 042
     Dates: start: 20100714
  2. VITAMIN TAB [Concomitant]
     Indication: MEDICAL DIET
     Dosage: NOT PROVIDED
     Route: 065
     Dates: start: 20100701
  3. CYCLIZINE LACTATE [Concomitant]
     Indication: NAUSEA
     Dosage: NOT PROVIDED
     Route: 065
     Dates: start: 20100819
  4. CYANOCOBALAMIN/FERRIC HYDROXIDE POLYMALTOSE COMPLEX/PYRIDOXINE HYDROCH [Concomitant]
     Indication: MEDICAL DIET
     Dosage: NOT PROVIDED
     Route: 065
     Dates: start: 20100701
  5. PARACETAMOL [Concomitant]
     Indication: PAIN
     Dosage: NOT PROVIDED
     Route: 065
     Dates: start: 20100725
  6. PARACETAMOL [Concomitant]
     Dosage: NOT PROVIDED
     Route: 065
     Dates: start: 20100722
  7. BEVACIZUMAB [Suspect]
     Indication: RENAL CELL CARCINOMA
     Route: 042
     Dates: start: 20100714
  8. SULPIRIDE [Concomitant]
     Indication: DEPRESSION
     Dosage: NOT PROVIDED
     Route: 065
     Dates: start: 20090701

REACTIONS (2)
  - DEHYDRATION [None]
  - PNEUMONIA [None]
